FAERS Safety Report 22095449 (Version 2)
Quarter: 2025Q1

REPORT INFORMATION
  Report Type: Spontaneous
  Country: CA (occurrence: CA)
  Receive Date: 20230314
  Receipt Date: 20250114
  Transmission Date: 20250409
  Serious: No
  Sender: PFIZER
  Company Number: CA-PFIZER INC-2021296404

PATIENT
  Age: 51 Year
  Sex: Male
  Weight: 112.7 kg

DRUGS (2)
  1. XELJANZ [Suspect]
     Active Substance: TOFACITINIB CITRATE
     Indication: Colitis ulcerative
     Dosage: 10 MG, 2X/DAY (60 TABS)
     Route: 048
     Dates: start: 2020
  2. PREDNISONE [Concomitant]
     Active Substance: PREDNISONE
     Dates: start: 202107

REACTIONS (4)
  - Product dose omission in error [Unknown]
  - Condition aggravated [Recovered/Resolved]
  - Malaise [Unknown]
  - Impaired quality of life [Not Recovered/Not Resolved]
